FAERS Safety Report 5564706-3 (Version None)
Quarter: 2007Q4

REPORT INFORMATION
  Report Type: 
  Country: None (occurrence: None)
  Receive Date: 20071218
  Receipt Date: 20071204
  Transmission Date: 20080405
  Serious: Yes (Disabling)
  Sender: FDA-Public Use
  Company Number: US-ELI_LILLY_AND_COMPANY-US200706004137

PATIENT
  Sex: Female

DRUGS (6)
  1. FORTEO [Suspect]
     Indication: OSTEOPOROSIS
     Dosage: UNK, UNK
     Dates: start: 20070501, end: 20070101
  2. DARVON [Concomitant]
     Indication: PAIN
  3. ASPIRIN [Concomitant]
     Dosage: 81 MG, DAILY (1/D)
  4. LOPRESSOR [Concomitant]
     Dosage: UNK, DAILY (1/D)
  5. FOLIC ACID [Concomitant]
     Indication: VITAMIN SUPPLEMENTATION
     Dosage: UNK, DAILY (1/D)
  6. PREVACID [Concomitant]
     Dosage: 15 MG, DAILY (1/D)

REACTIONS (2)
  - MOBILITY DECREASED [None]
  - PAIN IN EXTREMITY [None]
